FAERS Safety Report 4477725-5 (Version None)
Quarter: 2004Q3

REPORT INFORMATION
  Report Type: 
  Country: None (occurrence: None)
  Receive Date: 20040923
  Receipt Date: 20040616
  Transmission Date: 20050211
  Serious: No
  Sender: FDA-Public Use
  Company Number: USA040670201

PATIENT
  Age: 76 Year
  Sex: Female
  Weight: 49 kg

DRUGS (10)
  1. FORTEO [Suspect]
     Indication: OSTEOPOROSIS
     Dosage: 20 UG/1 DAY
     Dates: start: 20030101
  2. EVISTA [Suspect]
     Indication: OSTEOPOROSIS
     Dates: start: 20020401, end: 20020501
  3. ACTOS [Concomitant]
  4. AGGRENOX [Concomitant]
  5. PLAQUENIL [Concomitant]
  6. PREDNISONE [Concomitant]
  7. INDERAL [Concomitant]
  8. MULTI-VITAMIN [Concomitant]
  9. VITAMIN B-12 [Concomitant]
  10. CALCIUM WITH VITAMIN D [Concomitant]

REACTIONS (6)
  - ABDOMINAL PAIN UPPER [None]
  - ASTHENIA [None]
  - DIZZINESS [None]
  - FATIGUE [None]
  - RASH GENERALISED [None]
  - SLEEP DISORDER [None]
